FAERS Safety Report 14159398 (Version 1)
Quarter: 2017Q4

REPORT INFORMATION
  Report Type: Spontaneous
  Country: FR (occurrence: FR)
  Receive Date: 20171103
  Receipt Date: 20171103
  Transmission Date: 20180321
  Serious: Yes (Hospitalization)
  Sender: FDA-Public Use
  Company Number: FR-INDIVIOR LIMITED-INDV-105763-2017

PATIENT
  Age: 31 Year
  Sex: Male

DRUGS (6)
  1. SUBUTEX [Suspect]
     Active Substance: BUPRENORPHINE HYDROCHLORIDE
     Indication: PRODUCT USED FOR UNKNOWN INDICATION
     Dosage: UNK
     Route: 042
     Dates: start: 2008
  2. HEROIN [Suspect]
     Active Substance: DIAMORPHINE
     Indication: PRODUCT USED FOR UNKNOWN INDICATION
     Dosage: 15 G, QD (1 IN 1 DAY)
     Route: 042
     Dates: end: 2008
  3. ALCOHOL. [Suspect]
     Active Substance: ALCOHOL
     Indication: PRODUCT USED FOR UNKNOWN INDICATION
     Dosage: UNK
     Route: 048
  4. SUBUTEX [Suspect]
     Active Substance: BUPRENORPHINE HYDROCHLORIDE
     Dosage: UNK
     Route: 045
     Dates: start: 2008
  5. SUBUTEX [Suspect]
     Active Substance: BUPRENORPHINE HYDROCHLORIDE
     Dosage: THREE ADMINISTRATION PER DAY TRANSIENTLY
     Route: 065
     Dates: start: 201706
  6. ALCOHOL. [Suspect]
     Active Substance: ALCOHOL
     Dosage: TWO BEERS PER DAY
     Route: 048

REACTIONS (11)
  - Wound [Unknown]
  - Arthritis [Recovering/Resolving]
  - Fungal skin infection [Unknown]
  - Skin lesion [Unknown]
  - Alcohol abuse [Recovering/Resolving]
  - Intentional product misuse [Recovering/Resolving]
  - Intentional product use issue [Not Recovered/Not Resolved]
  - Drug abuse [Recovering/Resolving]
  - Candida infection [Unknown]
  - Drug dependence [Recovering/Resolving]
  - Synovitis [Unknown]

NARRATIVE: CASE EVENT DATE: 2008
